FAERS Safety Report 20615902 (Version 1)
Quarter: 2022Q1

REPORT INFORMATION
  Report Type: Spontaneous
  Country: US (occurrence: None)
  Receive Date: 20220318
  Receipt Date: 20220318
  Transmission Date: 20220423
  Serious: No
  Sender: FDA-Public Use
  Company Number: None

PATIENT
  Age: 79 Year
  Sex: Female
  Weight: 86.18 kg

DRUGS (13)
  1. CAPECITABINE [Suspect]
     Active Substance: CAPECITABINE
     Indication: Breast cancer metastatic
     Dosage: OTHER FREQUENCY : 2W, 1W OFF;?
     Route: 048
     Dates: start: 20220111, end: 20220318
  2. ACYCLOVIR [Concomitant]
     Active Substance: ACYCLOVIR
  3. ASPIRIN [Concomitant]
     Active Substance: ASPIRIN
  4. BISOPROLOL [Concomitant]
     Active Substance: BISOPROLOL
  5. CALCIUM GLUCONATE [Concomitant]
     Active Substance: CALCIUM GLUCONATE
  6. COENZYME Q10 [Concomitant]
     Active Substance: DIETARY SUPPLEMENT\UBIDECARENONE
  7. DULOXETINE HCI [Concomitant]
  8. OMEGA-3 ACIDS [Concomitant]
     Active Substance: OMEGA-3 FATTY ACIDS
  9. VITAMIN C [Concomitant]
     Active Substance: ASCORBIC ACID
  10. ROSUVASTATIN CALCIUM [Concomitant]
     Active Substance: ROSUVASTATIN CALCIUM
  11. SPIRONOLACTONE [Concomitant]
     Active Substance: SPIRONOLACTONE
  12. THIAMINE HYDROCHLORIDE [Concomitant]
     Active Substance: THIAMINE HYDROCHLORIDE
  13. VITAMIN D3 [Concomitant]
     Active Substance: CHOLECALCIFEROL

REACTIONS (3)
  - Decreased appetite [None]
  - Diarrhoea [None]
  - Constipation [None]
